FAERS Safety Report 8011194-3 (Version None)
Quarter: 2011Q4

REPORT INFORMATION
  Report Type: 
  Country: None (occurrence: None)
  Receive Date: 20111228
  Receipt Date: 20111220
  Transmission Date: 20120403
  Serious: Yes (Hospitalization)
  Sender: FDA-Public Use
  Company Number: JP-NOVOPROD-338999

PATIENT

DRUGS (8)
  1. AMARYL [Concomitant]
     Indication: BLOOD GLUCOSE ABNORMAL
     Dosage: 1 MG, QD
     Route: 048
  2. ASPIRIN [Concomitant]
     Dosage: 100 MG, QD
     Route: 048
     Dates: start: 20061225
  3. VICTOZA [Suspect]
     Dosage: 0.9 MG, QD
     Route: 058
     Dates: end: 20111106
  4. FAMOTIDINE [Concomitant]
     Dosage: 20 MG, QD
     Route: 048
     Dates: start: 20110301
  5. LAC-B [Concomitant]
     Dosage: 3 G, QD
     Route: 048
     Dates: start: 20071113
  6. VICTOZA [Suspect]
     Indication: TYPE 2 DIABETES MELLITUS
     Dosage: 0.3 MG, QD
     Route: 058
     Dates: start: 20110704
  7. VICTOZA [Suspect]
     Dosage: 0.6 MG, QD
     Route: 058
  8. MAGNESIUM OXIDE [Concomitant]
     Dosage: 1.5 G, QD
     Route: 048
     Dates: start: 20071113

REACTIONS (1)
  - ILEUS PARALYTIC [None]
